FAERS Safety Report 21775241 (Version 6)
Quarter: 2024Q3

REPORT INFORMATION
  Report Type: Report from Study
  Country: US (occurrence: US)
  Receive Date: 20221225
  Receipt Date: 20240905
  Transmission Date: 20241017
  Serious: Yes (Congenital Anomaly, Other)
  Sender: ABBVIE
  Company Number: US-ABBVIE-4244773

PATIENT
  Age: 0 Year
  Weight: 5 kg

DRUGS (1)
  1. HUMIRA [Suspect]
     Active Substance: ADALIMUMAB
     Indication: Maternal exposure timing unspecified
     Route: 064

REACTIONS (15)
  - Premature baby [Not Recovered/Not Resolved]
  - Food allergy [Unknown]
  - Haemangioma [Unknown]
  - Lacrimal structural disorder [Unknown]
  - Foetal exposure during pregnancy [Unknown]
  - Foetal growth restriction [Recovered/Resolved]
  - Vocal cord thickening [Unknown]
  - Rash [Unknown]
  - Dysphonia [Unknown]
  - Unevaluable event [Unknown]
  - Fungal skin infection [Recovered/Resolved]
  - Rash [Recovered/Resolved]
  - Gastroenteritis [Recovered/Resolved]
  - Dry mouth [Recovered/Resolved]
  - Lip dry [Recovered/Resolved]

NARRATIVE: CASE EVENT DATE: 20221123
